FAERS Safety Report 10770751 (Version 1)
Quarter: 2015Q1

REPORT INFORMATION
  Report Type: Report from Study
  Country: BE (occurrence: BE)
  Receive Date: 20150206
  Receipt Date: 20150206
  Transmission Date: 20150721
  Serious: Yes (Hospitalization)
  Sender: FDA-Public Use
  Company Number: BE-ABBVIE-14P-013-1279751-00

PATIENT
  Sex: Male

DRUGS (11)
  1. DUODOPA [Suspect]
     Active Substance: CARBIDOPA\LEVODOPA
     Dosage: AM DOSE: 4ML; CONTIN DOSE: 1.5ML/HR FOR 16 HRS; EXTRA DOSE: 1ML
     Route: 050
     Dates: start: 20130913, end: 20131029
  2. PROLOPA HBS [Concomitant]
     Indication: PARKINSON^S DISEASE
     Dosage: EMERGENCY MEDICATION: AT 10 PM
     Route: 048
  3. DUODOPA [Suspect]
     Active Substance: CARBIDOPA\LEVODOPA
     Dosage: DOSAGES CONTINUOUSLY MONITORED AND ADJUSTED
     Route: 050
     Dates: start: 20131029, end: 20140201
  4. DUODOPA [Suspect]
     Active Substance: CARBIDOPA\LEVODOPA
     Indication: PARKINSON^S DISEASE
     Route: 050
     Dates: start: 20130909, end: 20130913
  5. DUODOPA [Suspect]
     Active Substance: CARBIDOPA\LEVODOPA
     Route: 050
     Dates: end: 20140903
  6. DUODOPA [Suspect]
     Active Substance: CARBIDOPA\LEVODOPA
     Dosage: AM = 3.5 ML, CONTIN DOSE = 1.5 ML/H DURING 16H, EXTRA DOSE = 1 ML
     Route: 050
     Dates: start: 20140904, end: 20141028
  7. DUODOPA [Suspect]
     Active Substance: CARBIDOPA\LEVODOPA
     Dosage: MD: 3.5ML, CD: 1.3ML/H DURING 16HRS, ED: 1ML
     Route: 050
     Dates: start: 20141028, end: 20141119
  8. DUODOPA [Suspect]
     Active Substance: CARBIDOPA\LEVODOPA
     Dosage: AM = 3.5 ML, CD = 1.2 ML/H DURING 16H, ED = 1 ML
     Route: 050
     Dates: start: 20141119
  9. DUODOPA [Suspect]
     Active Substance: CARBIDOPA\LEVODOPA
     Dosage: AM DOSE: 3.5ML; CONTIN DOSE: 1.5ML/HR FOR 16 HRS; EXTRA DOSE: 1ML
     Route: 050
     Dates: start: 20140201
  10. STALEVO [Concomitant]
     Active Substance: CARBIDOPA\ENTACAPONE\LEVODOPA
     Indication: PARKINSON^S DISEASE
     Dosage: EMERGENCY MEDICATION: 5 IN 1 DAY
     Route: 048
  11. DUODOPA [Suspect]
     Active Substance: CARBIDOPA\LEVODOPA
     Dosage: AM = 3.5 ML, CONTIN DOSE = 1.5 ML/H DURING 16H, EXTRA DOSE = 1 ML
     Route: 050
     Dates: start: 20140903, end: 20140904

REACTIONS (10)
  - Cerebrovascular accident [Unknown]
  - Hospitalisation [Unknown]
  - Confusional state [Recovered/Resolved]
  - Depression [Unknown]
  - Cerebral haematoma [Unknown]
  - Extradural haematoma [Recovering/Resolving]
  - Dyskinesia [Recovered/Resolved]
  - Device dislocation [Unknown]
  - Apathy [Recovering/Resolving]
  - Freezing phenomenon [Recovered/Resolved]
